FAERS Safety Report 6997761-4 (Version None)
Quarter: 2010Q3

REPORT INFORMATION
  Report Type: 
  Country: None (occurrence: None)
  Receive Date: 20100919
  Receipt Date: 20100914
  Transmission Date: 20110219
  Serious: Yes (Death, Hospitalization)
  Sender: FDA-Public Use
  Company Number: JP-BRISTOL-MYERS SQUIBB COMPANY-15288624

PATIENT
  Age: 53 Year
  Sex: Male

DRUGS (2)
  1. ERBITUX [Suspect]
     Indication: COLON CANCER
     Route: 042
  2. IRINOTECAN HCL [Concomitant]
     Indication: COLON CANCER
     Dosage: IV INFUSION
     Route: 042

REACTIONS (2)
  - ASCITES [None]
  - DEATH [None]
